FAERS Safety Report 4965751-9 (Version None)
Quarter: 2006Q2

REPORT INFORMATION
  Report Type: 
  Country: None (occurrence: None)
  Receive Date: 20060403
  Receipt Date: 20060316
  Transmission Date: 20061013
  Serious: Yes (Hospitalization)
  Sender: FDA-Public Use
  Company Number: BR-2006-006154

PATIENT
  Age: 44 Year
  Sex: Female

DRUGS (1)
  1. BETAFERON           (INTERFERON BETA- 1B) [Suspect]
     Indication: MULTIPLE SCLEROSIS
     Dosage: 1 ML, EVERY 2D, SUBCUTANEOUS
     Route: 058
     Dates: start: 20050401

REACTIONS (4)
  - BALANCE DISORDER [None]
  - FALL [None]
  - TRAUMATIC FRACTURE [None]
  - WRIST FRACTURE [None]
